FAERS Safety Report 8221511-7 (Version None)
Quarter: 2012Q1

REPORT INFORMATION
  Report Type: 
  Country: None (occurrence: None)
  Receive Date: 20120320
  Receipt Date: 20120312
  Transmission Date: 20120608
  Serious: Yes (Hospitalization)
  Sender: FDA-Public Use
  Company Number: PHHY2011IT103579

PATIENT
  Sex: Female

DRUGS (6)
  1. ASPIRIN [Suspect]
     Indication: HYPERTENSION
     Dosage: 100 MG, (1 POSOLOGIC UNIT)
     Route: 048
     Dates: start: 20110804, end: 20111104
  2. SIMVASTATIN [Concomitant]
  3. METFORMIN HCL [Concomitant]
  4. CITALOPRAM HYDROBROMIDE [Concomitant]
  5. POTASSIO CANRENOATO SANDOZ [Suspect]
     Indication: HYPERTENSION
     Dosage: 50 MG, UNK
     Route: 048
     Dates: start: 20110804, end: 20111104
  6. RABEPRAZOLE SODIUM [Concomitant]

REACTIONS (3)
  - ABDOMINAL PAIN [None]
  - RENAL FAILURE [None]
  - HYPERKALAEMIA [None]
